FAERS Safety Report 9298222 (Version 6)
Quarter: 2016Q1

REPORT INFORMATION
  Report Type: Report from Study
  Country: US (occurrence: US)
  Receive Date: 20130520
  Receipt Date: 20160217
  Transmission Date: 20160526
  Serious: Yes (Hospitalization, Other)
  Sender: FDA-Public Use
  Company Number: US-SANOFI-AVENTIS-2013SA049243

PATIENT
  Age: 64 Year
  Sex: Male

DRUGS (1)
  1. AUBAGIO [Suspect]
     Active Substance: TERIFLUNOMIDE
     Indication: MULTIPLE SCLEROSIS
     Dosage: PRODUCT START DATE: COUPLE OF WEEKS.
     Route: 048
     Dates: start: 20130425

REACTIONS (13)
  - Device occlusion [Recovering/Resolving]
  - Diarrhoea [Recovering/Resolving]
  - Asthenia [Recovering/Resolving]
  - Blindness unilateral [Recovered/Resolved]
  - Vomiting [Recovering/Resolving]
  - Abdominal pain [Recovering/Resolving]
  - Bladder catheterisation [Unknown]
  - Decreased appetite [Recovering/Resolving]
  - Carotid artery occlusion [Unknown]
  - Urinary tract infection [Recovering/Resolving]
  - Gastrointestinal disorder [Recovering/Resolving]
  - Nausea [Recovering/Resolving]
  - Gait disturbance [Unknown]

NARRATIVE: CASE EVENT DATE: 2013
